FAERS Safety Report 4317557-1 (Version None)
Quarter: 2004Q1

REPORT INFORMATION
  Report Type: 
  Country: None (occurrence: None)
  Receive Date: 20040312
  Receipt Date: 20040301
  Transmission Date: 20041129
  Serious: No
  Sender: FDA-Public Use
  Company Number: 04P-020-0249741-00

PATIENT
  Age: 56 Year
  Sex: Female
  Weight: 95 kg

DRUGS (4)
  1. SEVORANE (SEVOFLURANE) (SEVOFLURANE) [Suspect]
     Indication: ANAESTHESIA
     Dosage: 4-11%, NOT REPORTED, INHALATION; SEE IMAGE
     Route: 055
  2. ECA INHIBITOR [Concomitant]
  3. PROPOFOL [Concomitant]
  4. FENTANYL [Concomitant]

REACTIONS (5)
  - DRUG INEFFECTIVE [None]
  - HEART RATE INCREASED [None]
  - HYPERTENSION [None]
  - MENTAL DISORDER [None]
  - PROCEDURAL COMPLICATION [None]
